FAERS Safety Report 13321251 (Version 1)
Quarter: 2017Q1

REPORT INFORMATION
  Report Type: Spontaneous
  Country: US (occurrence: US)
  Receive Date: 20170310
  Receipt Date: 20170310
  Transmission Date: 20170428
  Serious: Yes (Hospitalization)
  Sender: FDA-Public Use
  Company Number: US-TAKEDA-2017MPI001816

PATIENT
  Age: 72 Year
  Sex: Male

DRUGS (2)
  1. VELCADE [Suspect]
     Active Substance: BORTEZOMIB
     Indication: PLASMA CELL MYELOMA
     Dosage: UNK
     Route: 058
  2. REVLIMID [Concomitant]
     Active Substance: LENALIDOMIDE
     Route: 065

REACTIONS (3)
  - Anal incontinence [Not Recovered/Not Resolved]
  - Urinary incontinence [Not Recovered/Not Resolved]
  - Pain in extremity [Not Recovered/Not Resolved]
